FAERS Safety Report 9790198 (Version 2)
Quarter: 2014Q1

REPORT INFORMATION
  Report Type: Spontaneous
  Country: FR (occurrence: FR)
  Receive Date: 20131231
  Receipt Date: 20140129
  Transmission Date: 20141002
  Serious: Yes (Hospitalization, Other)
  Sender: FDA-Public Use
  Company Number: FR-JNJFOC-20131214742

PATIENT
  Age: 33 Year
  Sex: Female

DRUGS (7)
  1. CONTRAMAL [Suspect]
     Indication: DYSMENORRHOEA
     Route: 048
     Dates: end: 20131119
  2. IXPRIM [Suspect]
     Indication: DYSMENORRHOEA
     Route: 048
     Dates: end: 20131119
  3. EFFEXOR [Suspect]
     Indication: PRODUCT USED FOR UNKNOWN INDICATION
     Route: 048
     Dates: end: 20131119
  4. ANTADYS [Concomitant]
     Indication: DYSMENORRHOEA
     Route: 048
  5. IMIGRAN [Concomitant]
     Indication: MIGRAINE
     Route: 048
  6. PROPANOL [Concomitant]
     Indication: MIGRAINE
     Route: 048
  7. MONOCRIXO [Concomitant]
     Indication: MIGRAINE
     Route: 048

REACTIONS (5)
  - Tonic convulsion [Recovered/Resolved]
  - Hallucination, visual [Unknown]
  - Drug withdrawal syndrome [Unknown]
  - Drug dependence [Unknown]
  - Nausea [Unknown]
